FAERS Safety Report 5116366-3 (Version None)
Quarter: 2006Q3

REPORT INFORMATION
  Report Type: 
  Country: None (occurrence: None)
  Receive Date: 20060928
  Receipt Date: 20060710
  Transmission Date: 20061208
  Serious: Yes (Hospitalization)
  Sender: FDA-Public Use
  Company Number: FR-BAYER-200610651BFR

PATIENT
  Age: 70 Year
  Sex: Male
  Weight: 96 kg

DRUGS (6)
  1. GLUCOR [Suspect]
     Indication: UNEVALUABLE EVENT
     Route: 048
     Dates: end: 20060522
  2. DAONIL [Suspect]
     Indication: UNEVALUABLE EVENT
     Route: 048
     Dates: end: 20060522
  3. STAGID [Suspect]
     Indication: UNEVALUABLE EVENT
     Route: 048
     Dates: end: 20060522
  4. LIPANTHYL [Concomitant]
     Indication: UNEVALUABLE EVENT
     Route: 048
  5. KERLONE [Concomitant]
     Indication: UNEVALUABLE EVENT
     Route: 048
  6. FORTZAAR [Concomitant]
     Indication: UNEVALUABLE EVENT
     Route: 048

REACTIONS (4)
  - DEHYDRATION [None]
  - FALL [None]
  - HYPOGLYCAEMIA [None]
  - MALAISE [None]
